FAERS Safety Report 4310787-4 (Version None)
Quarter: 2004Q1

REPORT INFORMATION
  Report Type: 
  Country: None (occurrence: None)
  Receive Date: 20040303
  Receipt Date: 20020516
  Transmission Date: 20041129
  Serious: Yes (Hospitalization, Disabling, Other)
  Sender: FDA-Public Use
  Company Number: WAES 0205USA02082

PATIENT
  Age: 67 Year
  Sex: Female

DRUGS (2)
  1. VIOXX [Suspect]
     Indication: ARTHRITIS
     Route: 048
     Dates: start: 20011101
  2. VIOXX [Suspect]
     Indication: PAIN
     Route: 048
     Dates: start: 20011101

REACTIONS (25)
  - ABNORMAL BEHAVIOUR [None]
  - ADJUSTMENT DISORDER WITH DEPRESSED MOOD [None]
  - BLOOD CHOLESTEROL INCREASED [None]
  - BRADYCARDIA [None]
  - CARDIOMYOPATHY [None]
  - CATHETER RELATED COMPLICATION [None]
  - CELLULITIS [None]
  - CORONARY ARTERY DISEASE [None]
  - EPICONDYLITIS [None]
  - FALL [None]
  - FEELING ABNORMAL [None]
  - HYPERSENSITIVITY [None]
  - HYPOTENSION [None]
  - INJURY [None]
  - MYOCARDIAL INFARCTION [None]
  - NERVOUSNESS [None]
  - QUADRIPLEGIA [None]
  - ROAD TRAFFIC ACCIDENT [None]
  - SKIN LACERATION [None]
  - SPINAL CORD INJURY [None]
  - TREATMENT NONCOMPLIANCE [None]
  - TREMOR [None]
  - ULCER [None]
  - URINARY TRACT INFECTION [None]
  - WOUND INFECTION [None]
